FAERS Safety Report 10526608 (Version 1)
Quarter: 2014Q4

REPORT INFORMATION
  Report Type: Spontaneous
  Country: US (occurrence: US)
  Receive Date: 20141020
  Receipt Date: 20141020
  Transmission Date: 20150528
  Serious: Yes (Hospitalization, Other)
  Sender: FDA-Public Use
  Company Number: US-ORION CORPORATION ORION PHARMA-ENTC2014-0381

PATIENT
  Sex: Female

DRUGS (5)
  1. STALEVO [Suspect]
     Active Substance: CARBIDOPA\ENTACAPONE\LEVODOPA
     Route: 065
  2. MIRALAX [Suspect]
     Active Substance: POLYETHYLENE GLYCOL 3350
     Route: 065
  3. STALEVO [Suspect]
     Active Substance: CARBIDOPA\ENTACAPONE\LEVODOPA
     Route: 065
  4. FLUDROCORT [Concomitant]
     Route: 065
  5. AMANTAZINE [Concomitant]
     Route: 065

REACTIONS (6)
  - Blood pressure decreased [Unknown]
  - Asthenia [Unknown]
  - Loss of consciousness [Unknown]
  - Tremor [Unknown]
  - Road traffic accident [Unknown]
  - Hallucination [Unknown]
